FAERS Safety Report 7308103-9 (Version None)
Quarter: 2011Q1

REPORT INFORMATION
  Report Type: 
  Country: None (occurrence: None)
  Receive Date: 20110223
  Receipt Date: 20110210
  Transmission Date: 20110831
  Serious: Yes (Other)
  Sender: FDA-Public Use
  Company Number: DE-ROCHE-755008

PATIENT
  Sex: Female
  Weight: 62 kg

DRUGS (2)
  1. TAMIFLU [Suspect]
     Indication: INFLUENZA
     Route: 065
     Dates: start: 20110106, end: 20110110
  2. IBUBUFEN [Concomitant]
     Indication: PAIN
     Dates: start: 20110105

REACTIONS (5)
  - NIGHTMARE [None]
  - AGITATION [None]
  - ANXIETY [None]
  - CARDIOVASCULAR DISORDER [None]
  - DEPRESSION [None]
